FAERS Safety Report 6199431-1 (Version None)
Quarter: 2009Q2

REPORT INFORMATION
  Report Type: 
  Country: None (occurrence: None)
  Receive Date: 20090522
  Receipt Date: 20090519
  Transmission Date: 20091009
  Serious: Yes (Other)
  Sender: FDA-Public Use
  Company Number: US-BRISTOL-MYERS SQUIBB COMPANY-14631022

PATIENT
  Age: 74 Year
  Sex: Female

DRUGS (5)
  1. COUMADIN [Suspect]
     Indication: THROMBOSIS
     Dosage: COUMADIN ^ENDO^.
     Dates: start: 20090415
  2. PLAVIX [Suspect]
     Indication: THROMBOSIS
     Route: 048
     Dates: start: 20090415
  3. ADVAIR HFA [Concomitant]
     Indication: ASTHMA
     Route: 065
  4. SINGULAIR [Concomitant]
     Indication: ASTHMA
     Route: 065
  5. NASACORT [Concomitant]
     Indication: ASTHMA
     Route: 065

REACTIONS (1)
  - ERYTHEMA MULTIFORME [None]
